FAERS Safety Report 5982648-6 (Version None)
Quarter: 2008Q4

REPORT INFORMATION
  Report Type: 
  Country: None (occurrence: None)
  Receive Date: 20081208
  Receipt Date: 20080213
  Transmission Date: 20090506
  Serious: Yes (Other)
  Sender: FDA-Public Use
  Company Number: US-AMGEN-STX265321

PATIENT
  Sex: Female

DRUGS (5)
  1. ENBREL [Suspect]
     Indication: RHEUMATOID ARTHRITIS
     Route: 065
     Dates: start: 20060101, end: 20080207
  2. METHOTREXATE [Concomitant]
     Route: 065
  3. PREDNISONE TAB [Concomitant]
     Route: 065
     Dates: start: 20080207
  4. FOLIC ACID [Concomitant]
     Route: 065
  5. SYNTHROID [Concomitant]
     Route: 065

REACTIONS (2)
  - FATIGUE [None]
  - THROMBOCYTOPENIA [None]
